FAERS Safety Report 6536880-3 (Version None)
Quarter: 2010Q1

REPORT INFORMATION
  Report Type: 
  Country: None (occurrence: None)
  Receive Date: 20100113
  Receipt Date: 20100104
  Transmission Date: 20100710
  Serious: Yes (Other)
  Sender: FDA-Public Use
  Company Number: US-B.I. PHARMACEUTICALS,INC./RIDGEFIELD-2010-BP-00171BP

PATIENT
  Age: 56 Year
  Sex: Male

DRUGS (3)
  1. VIRAMUNE [Suspect]
     Indication: HIV INFECTION
  2. 13 MEDICATIONS [Concomitant]
  3. TRUVADA [Concomitant]
     Indication: HIV INFECTION

REACTIONS (10)
  - BENIGN PROSTATIC HYPERPLASIA [None]
  - BONE DENSITY DECREASED [None]
  - COGNITIVE DISORDER [None]
  - CONVULSION [None]
  - DIABETES MELLITUS [None]
  - HYPERTENSION [None]
  - LIPODYSTROPHY ACQUIRED [None]
  - MEMORY IMPAIRMENT [None]
  - PREMATURE AGEING [None]
  - SPINAL COMPRESSION FRACTURE [None]
